FAERS Safety Report 12455363 (Version 2)
Quarter: 2016Q2

REPORT INFORMATION
  Report Type: Report from Study
  Country: JP (occurrence: JP)
  Receive Date: 20160610
  Receipt Date: 20160616
  Transmission Date: 20160815
  Serious: Yes (Hospitalization)
  Sender: FDA-Public Use
  Company Number: PHJP2016JP011869

PATIENT
  Age: 6 Year
  Sex: Female
  Weight: 21.6 kg

DRUGS (4)
  1. E KEPPRA [Concomitant]
     Active Substance: LEVETIRACETAM
     Indication: EPILEPSY
     Dosage: 450 MG, BID
     Route: 048
     Dates: start: 20111024
  2. RIVOTRIL [Concomitant]
     Active Substance: CLONAZEPAM
     Indication: EPILEPSY
     Dosage: 0.5 MG, QD
     Route: 048
     Dates: start: 20110707
  3. AFINITOR [Suspect]
     Active Substance: EVEROLIMUS
     Indication: TUBEROUS SCLEROSIS
     Dosage: 9-15 NG/ML
     Route: 048
     Dates: start: 20141014, end: 20160413
  4. EXCEGRAN [Concomitant]
     Active Substance: ZONISAMIDE
     Indication: EPILEPSY
     Dosage: 55 MG, BID
     Route: 048
     Dates: start: 20101117

REACTIONS (1)
  - Moyamoya disease [Recovering/Resolving]

NARRATIVE: CASE EVENT DATE: 20160318
